FAERS Safety Report 5685988-3 (Version None)
Quarter: 2008Q1

REPORT INFORMATION
  Report Type: 
  Country: None (occurrence: None)
  Receive Date: 20080328
  Receipt Date: 20080324
  Transmission Date: 20080703
  Serious: Yes (Other)
  Sender: FDA-Public Use
  Company Number: US-BAYER-200811568NA

PATIENT
  Age: 31 Year
  Sex: Female
  Weight: 68 kg

DRUGS (1)
  1. MIRENA [Suspect]
     Indication: DRUG USE FOR UNKNOWN INDICATION
     Route: 015
     Dates: start: 20070221, end: 20080107

REACTIONS (3)
  - AMENORRHOEA [None]
  - ECTOPIC PREGNANCY WITH INTRAUTERINE DEVICE [None]
  - OVARIAN CYST [None]
